FAERS Safety Report 9414603 (Version 5)
Quarter: 2015Q2

REPORT INFORMATION
  Report Type: Report from Study
  Country: FR (occurrence: FR)
  Receive Date: 20130723
  Receipt Date: 20150626
  Transmission Date: 20150821
  Serious: Yes (Hospitalization, Other)
  Sender: FDA-Public Use
  Company Number: FR-UCBSA-089007

PATIENT
  Age: 54 Year
  Sex: Female
  Weight: 56 kg

DRUGS (7)
  1. CERTOLIZUMAB PEGOL RA [Suspect]
     Active Substance: CERTOLIZUMAB PEGOL
     Indication: RHEUMATOID ARTHRITIS
     Dosage: 200 MG, EV 2 WEEKS(QOW)
     Route: 058
     Dates: start: 201211, end: 20130619
  2. METHOTREXATE [Suspect]
     Active Substance: METHOTREXATE
     Dosage: DOSE: 10 MG WEEKLY
     Route: 048
     Dates: start: 20090528, end: 20090710
  3. SPECIAFOLDINE [Concomitant]
     Active Substance: FOLIC ACID
     Indication: RHEUMATOID ARTHRITIS
     Dosage: DOSE: 10 MG WEEKLY
     Route: 048
     Dates: start: 2009
  4. METHOTREXATE [Suspect]
     Active Substance: METHOTREXATE
     Dosage: DOSE: 10 MG WEEKLY
     Route: 058
     Dates: start: 20091205, end: 20100108
  5. METFORMINE [Concomitant]
     Active Substance: METFORMIN HYDROCHLORIDE
     Indication: DIABETES MELLITUS
     Dosage: DALY DOSE: 1 G
     Route: 048
     Dates: start: 2009
  6. METHOTREXATE [Suspect]
     Active Substance: METHOTREXATE
     Indication: RHEUMATOID ARTHRITIS
     Dosage: DOSE: 7.5 MG WEEKLY
     Route: 058
     Dates: start: 20100109, end: 20100924
  7. METHOTREXATE [Suspect]
     Active Substance: METHOTREXATE
     Dosage: DOSE: 15 MG WEEKLY
     Route: 048
     Dates: start: 20090711, end: 20091204

REACTIONS (1)
  - Tuberculosis [Recovering/Resolving]

NARRATIVE: CASE EVENT DATE: 201301
